FAERS Safety Report 5689743-X (Version None)
Quarter: 2008Q1

REPORT INFORMATION
  Report Type: 
  Country: None (occurrence: None)
  Receive Date: 20080328
  Receipt Date: 20080317
  Transmission Date: 20080703
  Serious: Yes (Hospitalization)
  Sender: FDA-Public Use
  Company Number: GXKR2008GB02740

PATIENT
  Age: 63 Year
  Sex: Male

DRUGS (13)
  1. SIMVASTATIN [Suspect]
     Dosage: 40 MG, ORAL
     Route: 048
     Dates: start: 20080120, end: 20080228
  2. ADCAL-D3 (CALCIUM CARBONATE, COLECALCIFEROL) [Concomitant]
  3. ADIZEM (DILTIAZEM HYDROCHLORIDE) [Concomitant]
  4. ACETYLSALICYLIC ACID SRT [Concomitant]
  5. BENDROFLUMETHIAZIDE (BENDROFLUMETHIAZIDE) [Concomitant]
  6. CORBOCISTEINE (CARBOCISTEINE) [Concomitant]
  7. CODEINE PHOSPHATE AND ACETAMINOPHEN [Concomitant]
  8. OMEPRAZOLE [Concomitant]
  9. RAMIPRIL [Concomitant]
  10. SALBUTAMOL (SALBUTAMOL) [Concomitant]
  11. FLUTICASONE PROPIONATE W/SALMETEROL XINAFOATE (FLUTICASONE PROPIONATE, [Concomitant]
  12. THEOPHYLLINE [Concomitant]
  13. TIOTROPIUM BROMIDE (TIOTROPIUM BROMIDE) [Concomitant]

REACTIONS (3)
  - BLOOD CREATINE PHOSPHOKINASE INCREASED [None]
  - CHEST PAIN [None]
  - MYALGIA [None]
